FAERS Safety Report 21265554 (Version 1)
Quarter: 2022Q3

REPORT INFORMATION
  Report Type: Spontaneous
  Country: US (occurrence: None)
  Receive Date: 20220827
  Receipt Date: 20220827
  Transmission Date: 20221027
  Serious: No
  Sender: FDA-Public Use
  Company Number: None

PATIENT
  Age: 81 Year
  Sex: Female
  Weight: 55.8 kg

DRUGS (8)
  1. TYRVAYA [Suspect]
     Active Substance: VARENICLINE TARTRATE
     Indication: Lacrimal disorder
     Dosage: OTHER QUANTITY : 1 PUFF(S);?FREQUENCY : EVERY 12 HOURS;?OTHER ROUTE : NASAL SPRAY;?
     Route: 050
     Dates: start: 20220824, end: 20220827
  2. PREMARIN [Concomitant]
     Active Substance: ESTROGENS, CONJUGATED
  3. PROGESTERONE [Concomitant]
     Active Substance: PROGESTERONE
  4. MONTELUKAST [Concomitant]
     Active Substance: MONTELUKAST SODIUM
  5. NEILMED SALINE [Concomitant]
  6. VITAMINS [Concomitant]
     Active Substance: VITAMINS
  7. GLUCOSAMINE [Concomitant]
     Active Substance: GLUCOSAMINE
  8. MAGNESIUM [Concomitant]
     Active Substance: MAGNESIUM

REACTIONS (5)
  - Insomnia [None]
  - Nausea [None]
  - Headache [None]
  - Facial pain [None]
  - Constipation [None]

NARRATIVE: CASE EVENT DATE: 20220825
